FAERS Safety Report 7230486-9 (Version None)
Quarter: 2011Q1

REPORT INFORMATION
  Report Type: 
  Country: None (occurrence: None)
  Receive Date: 20110118
  Receipt Date: 20110112
  Transmission Date: 20110831
  Serious: Yes (Other)
  Sender: FDA-Public Use
  Company Number: DE-JNJFOC-20110102818

PATIENT
  Sex: Female

DRUGS (1)
  1. CONCERTA [Suspect]
     Indication: ILL-DEFINED DISORDER
     Route: 048

REACTIONS (5)
  - DYSPHAGIA [None]
  - GOITRE [None]
  - GASTROINTESTINAL DISORDER [None]
  - OESOPHAGITIS [None]
  - PRODUCT SIZE ISSUE [None]
